FAERS Safety Report 6653338-1 (Version None)
Quarter: 2010Q1

REPORT INFORMATION
  Report Type: 
  Country: None (occurrence: None)
  Receive Date: 20100326
  Receipt Date: 20090207
  Transmission Date: 20100710
  Serious: Yes (Hospitalization)
  Sender: FDA-Public Use
  Company Number: PHHY2009TW60894

PATIENT

DRUGS (1)
  1. GLEEVEC [Suspect]
     Indication: GASTROINTESTINAL STROMAL TUMOUR
     Dosage: 400

REACTIONS (7)
  - DYSURIA [None]
  - FATIGUE [None]
  - HAEMATURIA [None]
  - JOINT FLUID DRAINAGE [None]
  - MUSCLE SPASMS [None]
  - OEDEMA PERIPHERAL [None]
  - SURGERY [None]
